FAERS Safety Report 10757191 (Version 1)
Quarter: 2015Q1

REPORT INFORMATION
  Report Type: Spontaneous
  Country: US (occurrence: None)
  Receive Date: 20150130
  Receipt Date: 20150130
  Transmission Date: 20150721
  Serious: Yes (Death)
  Sender: FDA-Public Use
  Company Number: 2014-PEL-000497

PATIENT
  Sex: Male

DRUGS (1)
  1. SEVOFLURANE, USP [Suspect]
     Active Substance: SEVOFLURANE
     Indication: INDUCTION OF ANAESTHESIA

REACTIONS (4)
  - Cardiac arrest [None]
  - Hypotension [None]
  - Bradycardia [None]
  - Drug dispensing error [None]
